FAERS Safety Report 19305616 (Version 1)
Quarter: 2021Q2

REPORT INFORMATION
  Report Type: Report from Study
  Country: BE (occurrence: BE)
  Receive Date: 20210526
  Receipt Date: 20210526
  Transmission Date: 20210717
  Serious: Yes (Other)
  Sender: FDA-Public Use
  Company Number: BE-TEVA-2021-BE-1914893

PATIENT
  Sex: Female

DRUGS (4)
  1. ARA?C [Suspect]
     Active Substance: CYTARABINE
     Indication: ACUTE LYMPHOCYTIC LEUKAEMIA
     Route: 065
  2. METHOTREXATE. [Suspect]
     Active Substance: METHOTREXATE
     Indication: ACUTE LYMPHOCYTIC LEUKAEMIA
     Dosage: DOSE/APPLICATION: 5 G/M2; RECEIVED 10 APPLICATIONS AS FOLLOWS (NUMBER OF APPLICATIONS): INDUCTION...
     Route: 042
  3. HYDROCORTISONE. [Concomitant]
     Active Substance: HYDROCORTISONE
     Route: 065
  4. METHOTREXATE. [Suspect]
     Active Substance: METHOTREXATE
     Indication: ACUTE LYMPHOCYTIC LEUKAEMIA
     Dosage: DOSE/APPLICATION: 12MG; RECEIVED A TOTAL OF 20 APPLICATIONS IN SEQUENCE AS FOLLOWS (NUMBER OF APP...
     Route: 037

REACTIONS (2)
  - White matter lesion [Unknown]
  - Epilepsy [Unknown]
